FAERS Safety Report 8984021 (Version 1)
Quarter: 2012Q4

REPORT INFORMATION
  Report Type: Spontaneous
  Country: US (occurrence: None)
  Receive Date: 20121218
  Receipt Date: 20121218
  Transmission Date: 20130627
  Serious: No
  Sender: FDA-Public Use
  Company Number: None

PATIENT
  Age: 62 Year
  Sex: Female
  Weight: 74.84 kg

DRUGS (2)
  1. LEVOFLOXACIN. [Suspect]
     Indication: CHRONIC BRONCHITIS
     Dosage: 750 mg  -   10 tablets   1xday
     Dates: start: 20121115, end: 20121123
  2. LEVOFLOXACIN. [Suspect]
     Dosage: 750 mg  -   10 tablets   1xday
     Dates: start: 20121115, end: 20121123

REACTIONS (6)
  - Paraesthesia [None]
  - Pruritus generalised [None]
  - Burning sensation [None]
  - Contusion [None]
  - Drug ineffective [None]
  - Rash [None]
